FAERS Safety Report 8496704-4 (Version None)
Quarter: 2012Q3

REPORT INFORMATION
  Report Type: 
  Country: None (occurrence: None)
  Receive Date: 20120709
  Receipt Date: 20120629
  Transmission Date: 20120928
  Serious: Yes (Death)
  Sender: FDA-Public Use
  Company Number: US-BAXTER-2012BAX009951

PATIENT
  Sex: Male

DRUGS (4)
  1. ALBUTEROL [Concomitant]
     Indication: ASTHMA
  2. SINGULAIR [Concomitant]
     Indication: ASTHMA
     Route: 048
  3. ARALAST NP [Suspect]
     Indication: ALPHA-1 ANTI-TRYPSIN DEFICIENCY
     Dosage: 6-8 OZ
     Route: 042
     Dates: start: 20060101, end: 20100101
  4. ADVAIR DISKUS 100/50 [Concomitant]
     Indication: ASTHMA

REACTIONS (7)
  - DEATH [None]
  - MALAISE [None]
  - RENAL FAILURE [None]
  - HEPATIC FAILURE [None]
  - SPLEEN DISORDER [None]
  - DEPRESSION [None]
  - DRUG INEFFECTIVE [None]
